FAERS Safety Report 5907616-1 (Version None)
Quarter: 2008Q4

REPORT INFORMATION
  Report Type: 
  Country: None (occurrence: None)
  Receive Date: 20081003
  Receipt Date: 20080930
  Transmission Date: 20090506
  Serious: Yes (Other)
  Sender: FDA-Public Use
  Company Number: IE-WYE-G02266408

PATIENT

DRUGS (1)
  1. TAZOCIN [Suspect]
     Dosage: UNKNOWN
     Route: 042

REACTIONS (2)
  - CENTRAL LINE INFECTION [None]
  - PSEUDOMONAS INFECTION [None]
